FAERS Safety Report 4361691-7 (Version None)
Quarter: 2004Q2

REPORT INFORMATION
  Report Type: 
  Country: None (occurrence: None)
  Receive Date: 20040521
  Receipt Date: 20040426
  Transmission Date: 20050107
  Serious: No
  Sender: FDA-Public Use
  Company Number: US-GLAXOSMITHKLINE-A0508421A

PATIENT
  Age: 39 Year
  Sex: Female

DRUGS (11)
  1. WELLBUTRIN [Suspect]
     Indication: DEPRESSION
     Dosage: 300MG PER DAY
     Route: 048
     Dates: start: 20040412
  2. VITAMIN A [Concomitant]
  3. VITAMIN C [Concomitant]
  4. ESTER C [Concomitant]
  5. VITAMIN D [Concomitant]
  6. VITAMIN E [Concomitant]
  7. COENZYME Q10 [Concomitant]
  8. MAGNESIUM [Concomitant]
  9. ALPHA LIPOIC ACID [Concomitant]
  10. FLAX OIL [Concomitant]
  11. FISH OIL [Concomitant]

REACTIONS (4)
  - ABDOMINAL PAIN [None]
  - ANOREXIA [None]
  - MENORRHAGIA [None]
  - METRORRHAGIA [None]
